FAERS Safety Report 9690453 (Version 2)
Quarter: 2013Q4

REPORT INFORMATION
  Report Type: Spontaneous
  Country: US (occurrence: US)
  Receive Date: 20131115
  Receipt Date: 20131227
  Transmission Date: 20140711
  Serious: Yes (Other)
  Sender: FDA-Public Use
  Company Number: US-PFIZER INC-2013326583

PATIENT
  Age: 52 Year
  Sex: Male

DRUGS (1)
  1. ALPRAZOLAM [Suspect]
     Indication: ANXIETY DISORDER
     Dosage: 2 DF, TWICE DAILY

REACTIONS (1)
  - Drug dependence [Unknown]
